FAERS Safety Report 6771905-1 (Version None)
Quarter: 2010Q2

REPORT INFORMATION
  Report Type: 
  Country: None (occurrence: None)
  Receive Date: 20100616
  Receipt Date: 20091014
  Transmission Date: 20101027
  Serious: No
  Sender: FDA-Public Use
  Company Number: US-ASTRAZENECA-2009SE17116

PATIENT
  Sex: Female

DRUGS (7)
  1. ENTOCORT EC [Suspect]
     Indication: COLITIS ULCERATIVE
     Route: 048
     Dates: start: 20090801, end: 20090901
  2. ASACOL [Concomitant]
  3. HYDROXYZINE [Concomitant]
  4. ZYRTEC [Concomitant]
  5. LEVOTHYROXINE SODIUM [Concomitant]
  6. COLAZAL [Concomitant]
  7. CORTICOSTEROIDS [Concomitant]
     Indication: MULTIPLE ALLERGIES

REACTIONS (5)
  - AMNESIA [None]
  - HYPERSENSITIVITY [None]
  - MUSCULAR WEAKNESS [None]
  - NERVOUS SYSTEM DISORDER [None]
  - VISUAL IMPAIRMENT [None]
